FAERS Safety Report 10101183 (Version 1)
Quarter: 2014Q2

REPORT INFORMATION
  Report Type: Spontaneous
  Country: AU (occurrence: None)
  Receive Date: 20140422
  Receipt Date: 20140422
  Transmission Date: 20141212
  Serious: Yes (Death, Life-Threatening, Hospitalization, Other)
  Sender: FDA-Public Use
  Company Number: FK201401356

PATIENT
  Age: 60 Year
  Sex: Male

DRUGS (10)
  1. HALOPERIDOL [Suspect]
     Indication: DEMENTIA
     Dosage: 60 MG, TITRATED TO 60 MG - DIVIDED DAILY DOSES
  2. VALPROATE (MANUFACTURER UNKNOWN) (VALPROATE SODIUM) (VALPROATE SODIUM) [Suspect]
     Indication: FRONTOTEMPORAL DEMENTIA
  3. VALPROATE (MANUFACTURER UNKNOWN) (VALPROATE SODIUM) (VALPROATE SODIUM) [Suspect]
     Indication: AGGRESSION
  4. QUETIAPINE (QUETIAPINE) [Concomitant]
  5. OLANZAPINE (OLANZAPINE) [Concomitant]
  6. RISPERIDONE (RISPERIDONE) [Suspect]
  7. OXAZEPAM (OXAZEPAM) [Concomitant]
  8. CLONAZEPAM (CLONAZEPAM) (CLONAZEPAM) [Concomitant]
  9. ZUCLOPENTHIXOL (ZUCLOPENTHIXOL) [Concomitant]
  10. VENLAFAXINE (VENLAFAXINE) [Concomitant]

REACTIONS (13)
  - General physical health deterioration [None]
  - Decubitus ulcer [None]
  - Extrapyramidal disorder [None]
  - Dysphagia [None]
  - Sedation [None]
  - Agitation [None]
  - Hypophagia [None]
  - Fluid intake reduced [None]
  - Pyrexia [None]
  - Somnolence [None]
  - Aggression [None]
  - Sepsis [None]
  - Infected skin ulcer [None]
